FAERS Safety Report 12539552 (Version 10)
Quarter: 2017Q2

REPORT INFORMATION
  Report Type: Spontaneous
  Country: CA (occurrence: CA)
  Receive Date: 20160708
  Receipt Date: 20170606
  Transmission Date: 20170830
  Serious: Yes (Other)
  Sender: FDA-Public Use
  Company Number: CA-009507513-1511CAN007819

PATIENT
  Age: 57 Year
  Sex: Male
  Weight: 106.7 kg

DRUGS (8)
  1. KEYTRUDA [Suspect]
     Active Substance: PEMBROLIZUMAB
     Indication: HODGKIN^S DISEASE
     Dosage: 2 MG/KG, Q3W (200 MG)
     Route: 042
     Dates: start: 20151104, end: 2016
  2. KEYTRUDA [Suspect]
     Active Substance: PEMBROLIZUMAB
     Dosage: 2 MG/KG, Q3W(190 MG)
     Route: 042
     Dates: start: 20161104, end: 20170118
  3. KEYTRUDA [Suspect]
     Active Substance: PEMBROLIZUMAB
     Dosage: 2 MG/KG, Q3W (200 MG)
     Route: 042
     Dates: start: 2016, end: 2016
  4. KEYTRUDA [Suspect]
     Active Substance: PEMBROLIZUMAB
     Dosage: 2 MG/KG, Q3W (190 MG)
     Route: 042
     Dates: start: 2016, end: 2016
  5. KEYTRUDA [Suspect]
     Active Substance: PEMBROLIZUMAB
     Dosage: 2 MG/KG, Q3W
     Route: 042
     Dates: start: 2016, end: 2016
  6. KEYTRUDA [Suspect]
     Active Substance: PEMBROLIZUMAB
     Dosage: 2 MG/KG, Q3W (190 MG)
     Route: 042
     Dates: start: 2016, end: 2016
  7. KEYTRUDA [Suspect]
     Active Substance: PEMBROLIZUMAB
     Dosage: 2 MG/KG, Q3W(190 MG)
     Route: 042
     Dates: start: 20170322
  8. KEYTRUDA [Suspect]
     Active Substance: PEMBROLIZUMAB
     Dosage: 190 MG, Q3W
     Route: 042
     Dates: start: 2017

REACTIONS (12)
  - Ophthalmic herpes zoster [Unknown]
  - Lung infection [Not Recovered/Not Resolved]
  - Influenza [Recovered/Resolved]
  - Pain in extremity [Recovering/Resolving]
  - Weight fluctuation [Unknown]
  - Weight increased [Unknown]
  - Transfusion-related circulatory overload [Unknown]
  - Blood pressure increased [Unknown]
  - Product use in unapproved indication [Unknown]
  - Tremor [Recovered/Resolved]
  - Arthralgia [Recovering/Resolving]
  - Heart rate decreased [Unknown]

NARRATIVE: CASE EVENT DATE: 201511
